FAERS Safety Report 24079918 (Version 1)
Quarter: 2024Q3

REPORT INFORMATION
  Report Type: Report from Study
  Country: US (occurrence: US)
  Receive Date: 20240711
  Receipt Date: 20240711
  Transmission Date: 20241017
  Serious: Yes (Hospitalization)
  Sender: EISAI
  Company Number: US-Eisai-EC-2024-169651

PATIENT
  Age: 62 Year
  Sex: Male
  Weight: 90.7 kg

DRUGS (21)
  1. LENVIMA [Suspect]
     Active Substance: LENVATINIB
     Indication: Hepatic cancer
     Route: 048
     Dates: start: 20240622
  2. VITAMIN C [Concomitant]
     Active Substance: ASCORBIC ACID
     Dosage: DOSE AND FREQUENCY UNKNOWN
  3. MELATONIN [Concomitant]
     Active Substance: MELATONIN
     Dosage: DOSE AND FREQUENCY UNKNOWN
  4. SENNA-S [Concomitant]
     Active Substance: DOCUSATE SODIUM\SENNOSIDES
     Dosage: DOSE AND FREQUENCY UNKNOWN
  5. COENZYME Q-10 [Concomitant]
     Dosage: DOSE AND FREQUENCY UNKNOWN
  6. KRILL OIL [Concomitant]
     Active Substance: DIETARY SUPPLEMENT\KRILL OIL
     Dosage: DOSE AND FREQUENCY UNKNOWN
  7. COREG [Concomitant]
     Active Substance: CARVEDILOL
     Dosage: DOSE AND FREQUENCY UNKNOWN
  8. PEPCID [Concomitant]
     Active Substance: FAMOTIDINE
     Dosage: DOSE AND FREQUENCY UNKNOWN
  9. FERROUS SULFATE [Concomitant]
     Active Substance: FERROUS SULFATE
     Dosage: DOSE AND FREQUENCY UNKNOWN
  10. MORPHINE SULFATE [Concomitant]
     Active Substance: MORPHINE SULFATE
     Dosage: DOSE AND FREQUENCY UNKNOWN
  11. HYDRALAZINE HCL [Concomitant]
     Active Substance: HYDRALAZINE HYDROCHLORIDE
     Dosage: DOSE AND FREQUENCY UNKNOWN
  12. PREDNISONE [Concomitant]
     Active Substance: PREDNISONE
     Dosage: DOSE AND FREQUENCY UNKNOWN
  13. ESCITALOPRAM OXALATE [Concomitant]
     Active Substance: ESCITALOPRAM OXALATE
     Dosage: DOSE AND FREQUENCY UNKNOWN
  14. PRAVASTATIN SODIUM [Concomitant]
     Active Substance: PRAVASTATIN SODIUM
     Dosage: DOSE AND FREQUENCY UNKNOWN
  15. GABAPENTIN [Concomitant]
     Active Substance: GABAPENTIN
     Dosage: DOSE AND FREQUENCY UNKNOWN
  16. METFORMIN HYDROCHLORIDE [Concomitant]
     Active Substance: METFORMIN HYDROCHLORIDE
     Dosage: DOSE AND FREQUENCY UNKNOWN
  17. AMLODIPINE BESYLATE [Concomitant]
     Active Substance: AMLODIPINE BESYLATE
     Dosage: DOSE AND FREQUENCY UNKNOWN
  18. CLOPIDOGREL [Concomitant]
     Active Substance: CLOPIDOGREL BISULFATE
     Dosage: DOSE AND FREQUENCY UNKNOWN
  19. ONDANSETRON [Concomitant]
     Active Substance: ONDANSETRON
     Dosage: DOSE AND FREQUENCY UNKNOWN
  20. DOCUSATE SODIUM [Concomitant]
     Active Substance: DOCUSATE SODIUM
     Dosage: DOSE AND FREQUENCY UNKNOWN
  21. VITAMINS [Concomitant]
     Active Substance: VITAMINS
     Dosage: DOSE AND FREQUENCY

REACTIONS (6)
  - Abdominal pain upper [Recovering/Resolving]
  - Diarrhoea [Recovering/Resolving]
  - Nausea [Not Recovered/Not Resolved]
  - Ascites [Unknown]
  - Dysphonia [Unknown]
  - Constipation [Unknown]

NARRATIVE: CASE EVENT DATE: 20240601
